FAERS Safety Report 4366026-1 (Version None)
Quarter: 2004Q2

REPORT INFORMATION
  Report Type: 
  Country: None (occurrence: None)
  Receive Date: 20040527
  Receipt Date: 20040518
  Transmission Date: 20050107
  Serious: Yes (Disabling, Other)
  Sender: FDA-Public Use
  Company Number: FR-BRISTOL-MYERS SQUIBB COMPANY-12590444

PATIENT
  Age: 30 Month
  Sex: Female
  Weight: 15 kg

DRUGS (4)
  1. VIDEX [Suspect]
     Dosage: EXPOSURE THROUGHOUT THE GESTATION.
     Route: 064
     Dates: end: 20000727
  2. EPIVIR [Suspect]
     Dosage: EXPOSURE THROUGHOUT THE GESTATION.
     Route: 064
     Dates: end: 20000727
  3. NORVIR [Suspect]
     Dosage: EXPOSURE THROUGHOUT THE GESTATION.
     Route: 064
     Dates: end: 20000727
  4. NEVIRAPINE [Concomitant]
     Dates: start: 20000727, end: 20000729

REACTIONS (6)
  - GASTROINTESTINAL DISORDER [None]
  - NEOPLASM MALIGNANT [None]
  - PREGNANCY [None]
  - RETINAL DISORDER [None]
  - RETINOBLASTOMA [None]
  - STRABISMUS [None]
